FAERS Safety Report 5030623-0 (Version None)
Quarter: 2006Q2

REPORT INFORMATION
  Report Type: 
  Country: None (occurrence: None)
  Receive Date: 20060620
  Receipt Date: 20060609
  Transmission Date: 20061013
  Serious: Yes (Death)
  Sender: FDA-Public Use
  Company Number: DE-MERCK-0606DEU00033

PATIENT
  Age: 65 Year
  Sex: Male

DRUGS (2)
  1. INVANZ [Suspect]
     Indication: PANCREATITIS
     Route: 041
  2. INVANZ [Suspect]
     Indication: SEPSIS
     Route: 041

REACTIONS (2)
  - PANCREATITIS [None]
  - SEPSIS [None]
